FAERS Safety Report 4428840-3 (Version None)
Quarter: 2004Q3

REPORT INFORMATION
  Report Type: 
  Country: None (occurrence: None)
  Receive Date: 20040813
  Receipt Date: 20040803
  Transmission Date: 20050211
  Serious: Yes (Disabling)
  Sender: FDA-Public Use
  Company Number: GBWYE950005AUG04

PATIENT
  Sex: Female

DRUGS (2)
  1. MINOCIN [Suspect]
     Indication: ACNE
     Dosage: 100 MG BD, ORAL
     Route: 048
     Dates: start: 20010602, end: 20040714
  2. TRIDESTRA (ESTRADIOL VALERATE/MEDROXYPROGESTERONE ACETATE) [Concomitant]

REACTIONS (4)
  - CONJUNCTIVAL DISCOLOURATION [None]
  - PIGMENTATION DISORDER [None]
  - SKIN DISCOLOURATION [None]
  - TYMPANIC MEMBRANE DISORDER [None]
